FAERS Safety Report 5890219-5 (Version None)
Quarter: 2008Q3

REPORT INFORMATION
  Report Type: 
  Country: None (occurrence: None)
  Receive Date: 20080919
  Receipt Date: 20080909
  Transmission Date: 20090109
  Serious: Yes (Other)
  Sender: FDA-Public Use
  Company Number: US-PFIZER INC-2008075991

PATIENT
  Sex: Male
  Weight: 62.272 kg

DRUGS (7)
  1. LIPITOR [Suspect]
     Indication: BLOOD CHOLESTEROL INCREASED
     Dates: end: 20080101
  2. AMLODIPINE BESYLATE [Concomitant]
  3. TRIAMTERENE AND HYDROCHLOROTHIAZIDE [Concomitant]
     Dosage: TEXT:25/37.5
  4. MINERALS NOS [Concomitant]
  5. FISH OIL [Concomitant]
  6. GLUCOSAMINE [Concomitant]
  7. LECITHIN [Concomitant]

REACTIONS (13)
  - ARTHRITIS [None]
  - BLOOD CHOLESTEROL INCREASED [None]
  - DYSSTASIA [None]
  - EXERCISE TOLERANCE DECREASED [None]
  - JOINT RANGE OF MOTION DECREASED [None]
  - MUSCLE DISORDER [None]
  - MUSCLE STRAIN [None]
  - MUSCLE TWITCHING [None]
  - MUSCULAR WEAKNESS [None]
  - MYALGIA [None]
  - ROTATOR CUFF SYNDROME [None]
  - UNEVALUABLE EVENT [None]
  - WRONG TECHNIQUE IN DRUG USAGE PROCESS [None]
